FAERS Safety Report 25033396 (Version 1)
Quarter: 2025Q1

REPORT INFORMATION
  Report Type: Spontaneous
  Country: CA (occurrence: CA)
  Receive Date: 20250303
  Receipt Date: 20250303
  Transmission Date: 20250409
  Serious: Yes (Other)
  Sender: HLS THERAPEUTICS
  Company Number: CA-HLS-202500464

PATIENT
  Age: 62 Year
  Sex: Female
  Weight: 43 kg

DRUGS (23)
  1. ACETAMINOPHEN [Concomitant]
     Active Substance: ACETAMINOPHEN
     Indication: Product used for unknown indication
     Route: 048
  2. BENYLIN DM [Concomitant]
     Active Substance: DEXTROMETHORPHAN HYDROBROMIDE\GUAIFENESIN
     Indication: Antitussive therapy
     Route: 048
  3. BISACODYL [Concomitant]
     Active Substance: BISACODYL
     Indication: Product used for unknown indication
     Route: 065
  4. CLOZAPINE [Suspect]
     Active Substance: CLOZAPINE
     Indication: Product used for unknown indication
     Route: 048
  5. CLOZAPINE [Suspect]
     Active Substance: CLOZAPINE
     Indication: Product used for unknown indication
     Route: 065
  6. DIPHENHYDRAMINE HYDROCHLORIDE [Concomitant]
     Active Substance: DIPHENHYDRAMINE HYDROCHLORIDE
     Indication: Product used for unknown indication
     Route: 048
  7. LACTULOSE [Concomitant]
     Active Substance: LACTULOSE
     Indication: Constipation
     Route: 048
  8. LACTULOSE [Concomitant]
     Active Substance: LACTULOSE
     Indication: Product used for unknown indication
     Route: 048
  9. LACTULOSE [Concomitant]
     Active Substance: LACTULOSE
     Indication: Constipation
     Route: 048
  10. LACTULOSE [Concomitant]
     Active Substance: LACTULOSE
     Indication: Product used for unknown indication
     Route: 048
  11. LACTULOSE [Concomitant]
     Active Substance: LACTULOSE
     Indication: Constipation
     Route: 048
  12. LACTULOSE [Concomitant]
     Active Substance: LACTULOSE
     Indication: Product used for unknown indication
     Route: 048
  13. MIRTAZAPINE [Concomitant]
     Active Substance: MIRTAZAPINE
     Indication: Product used for unknown indication
     Route: 065
  14. OLANZAPINE [Suspect]
     Active Substance: OLANZAPINE
     Indication: Product used for unknown indication
     Route: 048
  15. OLANZAPINE [Suspect]
     Active Substance: OLANZAPINE
     Indication: Product used for unknown indication
     Route: 048
  16. QUETIAPINE FUMARATE [Suspect]
     Active Substance: QUETIAPINE FUMARATE
     Indication: Product used for unknown indication
     Route: 065
  17. RISPERIDONE [Suspect]
     Active Substance: RISPERIDONE
     Indication: Product used for unknown indication
     Route: 065
  18. RISPERIDONE [Suspect]
     Active Substance: RISPERIDONE
     Indication: Product used for unknown indication
     Route: 065
  19. SENNOSIDES [Concomitant]
     Active Substance: SENNOSIDES
     Indication: Constipation
     Route: 048
  20. SENNOSIDES [Concomitant]
     Active Substance: SENNOSIDES
     Indication: Product used for unknown indication
     Route: 048
  21. SENNOSIDES [Concomitant]
     Active Substance: SENNOSIDES
     Indication: Constipation
     Route: 048
  22. SENNOSIDES [Concomitant]
     Active Substance: SENNOSIDES
     Indication: Product used for unknown indication
     Route: 048
  23. VENLAFAXINE HYDROCHLORIDE [Concomitant]
     Active Substance: VENLAFAXINE HYDROCHLORIDE
     Indication: Product used for unknown indication
     Route: 065

REACTIONS (3)
  - Drug resistance [Unknown]
  - Neutropenia [Unknown]
  - Oropharyngeal pain [Unknown]
